FAERS Safety Report 4891821-X (Version None)
Quarter: 2006Q1

REPORT INFORMATION
  Report Type: 
  Country: None (occurrence: None)
  Receive Date: 20060123
  Receipt Date: 20060106
  Transmission Date: 20060701
  Serious: Yes (Hospitalization)
  Sender: FDA-Public Use
  Company Number: EWC051046483

PATIENT
  Age: 57 Year
  Sex: Male

DRUGS (3)
  1. ZYPREXA [Suspect]
     Dosage: 10 MG, DAILY (1/D), ORAL
     Route: 048
     Dates: start: 20050224, end: 20050316
  2. CITALOPRAM HYDROBROMIDE [Concomitant]
  3. REMERON [Concomitant]

REACTIONS (1)
  - ILEUS [None]
